FAERS Safety Report 8427790-5 (Version None)
Quarter: 2012Q2

REPORT INFORMATION
  Report Type: 
  Country: None (occurrence: None)
  Receive Date: 20120611
  Receipt Date: 20120601
  Transmission Date: 20120825
  Serious: No
  Sender: FDA-Public Use
  Company Number: US-ASTRAZENECA-2011SE09182

PATIENT
  Age: 68 Year
  Sex: Female

DRUGS (2)
  1. NEXIUM [Suspect]
     Route: 048
  2. ATACAND [Suspect]
     Route: 048

REACTIONS (3)
  - DRUG DOSE OMISSION [None]
  - MALAISE [None]
  - DYSPEPSIA [None]
